FAERS Safety Report 8818527 (Version 2)
Quarter: 2012Q4

REPORT INFORMATION
  Report Type: Spontaneous
  Country: US (occurrence: None)
  Receive Date: 20121003
  Receipt Date: 20121024
  Transmission Date: 20130627
  Serious: Yes (Other)
  Sender: FDA-Public Use
  Company Number: ADR-2012-01803

PATIENT
  Sex: Female

DRUGS (8)
  1. BACLOFEN INTRATHECAL (BACLOFEN INJECTION) [Suspect]
     Indication: PAIN
  2. FENTANYL [Concomitant]
  3. CLONIDINE [Concomitant]
  4. BUPIVACAINE [Concomitant]
  5. PRIALT (ZICONITIDE) [Concomitant]
  6. DROPERIDOL [Concomitant]
  7. DILAUDID [Concomitant]
  8. MORPHINE [Concomitant]

REACTIONS (3)
  - Medical device complication [None]
  - Pain [None]
  - Local swelling [None]
